FAERS Safety Report 24526676 (Version 1)
Quarter: 2024Q4

REPORT INFORMATION
  Report Type: Report from Study
  Country: US (occurrence: US)
  Receive Date: 20241021
  Receipt Date: 20241021
  Transmission Date: 20250114
  Serious: No
  Sender: ROCHE
  Company Number: US-ROCHE-3453861

PATIENT
  Age: 75 Year
  Sex: Male
  Weight: 77.11 kg

DRUGS (4)
  1. ZELBORAF [Suspect]
     Active Substance: VEMURAFENIB
     Indication: Erdheim-Chester disease
     Dosage: THE PATIENT STATED THAT HE TAKES ONE TABLET EVERY OTHER DAY, AND IT WAS 15 TABLETS FOR THE MONTH
     Route: 048
     Dates: start: 2016
  2. ASPIRIN [Concomitant]
     Active Substance: ASPIRIN
     Dosage: THE PATIENT STATED HE STARTED IT YEARS AGO
     Route: 048
  3. ALLOPURINOL [Concomitant]
     Active Substance: ALLOPURINOL
     Indication: Gout
     Dosage: THE PATIENT STATED HE STARTED IT ABOUT A YEAR AND HALF AGO
     Route: 048
     Dates: start: 2021
  4. VITAMIN D [Concomitant]
     Active Substance: VITAMIN D NOS
     Indication: Vitamin D decreased
     Route: 048
     Dates: start: 2016

REACTIONS (10)
  - Pain in extremity [Recovered/Resolved]
  - Peripheral swelling [Recovered/Resolved]
  - Hyperkeratosis [Recovered/Resolved]
  - Photosensitivity reaction [Recovered/Resolved]
  - Hair texture abnormal [Not Recovered/Not Resolved]
  - COVID-19 [Recovered/Resolved]
  - Gout [Not Recovered/Not Resolved]
  - Hernia [Recovered/Resolved]
  - Vitamin D decreased [Unknown]
  - Hypoacusis [Unknown]

NARRATIVE: CASE EVENT DATE: 20160101
